FAERS Safety Report 20541842 (Version 1)
Quarter: 2022Q1

REPORT INFORMATION
  Report Type: Spontaneous
  Country: DE (occurrence: DE)
  Receive Date: 20220302
  Receipt Date: 20220302
  Transmission Date: 20220423
  Serious: Yes (Other)
  Sender: FDA-Public Use
  Company Number: DE-JNJFOC-20211163886

PATIENT

DRUGS (3)
  1. PREZISTA [Suspect]
     Active Substance: DARUNAVIR ETHANOLATE
     Indication: Product used for unknown indication
     Route: 048
  2. NORVIR [Suspect]
     Active Substance: RITONAVIR
     Indication: Product used for unknown indication
     Route: 065
  3. LATANOPROST [Suspect]
     Active Substance: LATANOPROST
     Indication: Glaucoma
     Route: 065

REACTIONS (8)
  - Carotid artery occlusion [Unknown]
  - Asthma [Unknown]
  - Pruritus [Unknown]
  - Rash [Unknown]
  - Hypercholesterolaemia [Unknown]
  - Hypertension [Unknown]
  - Off label use [Unknown]
  - Product use issue [Unknown]
